FAERS Safety Report 10095604 (Version 1)
Quarter: 2014Q2

REPORT INFORMATION
  Report Type: Spontaneous
  Country: FR (occurrence: FR)
  Receive Date: 20140422
  Receipt Date: 20140422
  Transmission Date: 20141212
  Serious: Yes (Hospitalization, Other)
  Sender: FDA-Public Use
  Company Number: FR-ASTRAZENECA-2014SE27170

PATIENT
  Age: 893 Month
  Sex: Female

DRUGS (6)
  1. INEXIUM [Suspect]
     Route: 048
  2. SPECIAFOLDINE [Suspect]
     Indication: ANAEMIA
     Route: 048
     Dates: start: 2013
  3. CARDENSIEL [Suspect]
     Indication: ATRIAL FLUTTER
     Route: 048
     Dates: start: 201303
  4. XARELTO [Suspect]
     Indication: ATRIAL FLUTTER
     Route: 048
     Dates: start: 201308, end: 20140119
  5. UVEDOSE [Suspect]
     Indication: VITAMIN D DEFICIENCY
     Route: 048
     Dates: start: 201311
  6. IXPRIM [Suspect]
     Indication: PAIN
     Route: 048

REACTIONS (5)
  - Ischaemic stroke [Recovered/Resolved with Sequelae]
  - Weight decreased [Unknown]
  - Malnutrition [Unknown]
  - Myelodysplastic syndrome [Unknown]
  - Osteoarthritis [Unknown]
